FAERS Safety Report 8122247-3 (Version None)
Quarter: 2012Q1

REPORT INFORMATION
  Report Type: 
  Country: None (occurrence: None)
  Receive Date: 20120208
  Receipt Date: 20120127
  Transmission Date: 20120608
  Serious: Yes (Other)
  Sender: FDA-Public Use
  Company Number: GB-ROCHE-1037006

PATIENT
  Sex: Female

DRUGS (4)
  1. OMEPRAZOLE [Concomitant]
  2. LUCENTIS [Suspect]
     Dosage: INTERRUPTED
     Dates: start: 20110418
  3. LUCENTIS [Suspect]
     Dosage: RESTARTED
     Dates: start: 20111011
  4. LUCENTIS [Suspect]
     Indication: PRODUCT USED FOR UNKNOWN INDICATION
     Route: 050
     Dates: start: 20110316

REACTIONS (1)
  - RECTAL HAEMORRHAGE [None]
